FAERS Safety Report 6076499-4 (Version None)
Quarter: 2009Q1

REPORT INFORMATION
  Report Type: 
  Country: None (occurrence: None)
  Receive Date: 20090211
  Receipt Date: 20090130
  Transmission Date: 20090719
  Serious: Yes (Hospitalization)
  Sender: FDA-Public Use
  Company Number: 238964J08USA

PATIENT
  Age: 22 Year
  Sex: Female

DRUGS (3)
  1. REBIF [Suspect]
     Indication: MULTIPLE SCLEROSIS
     Dosage: SUBCUTANEOUS
     Route: 058
     Dates: start: 20070322
  2. IMMUNE GLOBULIN (HUMAN) [Suspect]
     Indication: CONDITION AGGRAVATED
     Dosage: ONCE, INTRAVENOUS
     Route: 042
     Dates: start: 20080901, end: 20080901
  3. IMMUNE GLOBULIN (HUMAN) [Suspect]
     Indication: MULTIPLE SCLEROSIS
     Dosage: ONCE, INTRAVENOUS
     Route: 042
     Dates: start: 20080901, end: 20080901

REACTIONS (5)
  - CONDITION AGGRAVATED [None]
  - DELUSION [None]
  - MULTIPLE SCLEROSIS [None]
  - NASOPHARYNGITIS [None]
  - PRESYNCOPE [None]
